FAERS Safety Report 7055912-X (Version None)
Quarter: 2010Q4

REPORT INFORMATION
  Report Type: 
  Country: None (occurrence: None)
  Receive Date: 20101021
  Receipt Date: 20101015
  Transmission Date: 20110411
  Serious: Yes (Congenital Anomaly)
  Sender: FDA-Public Use
  Company Number: A0735245A

PATIENT
  Sex: Male

DRUGS (4)
  1. PAXIL CR [Suspect]
     Indication: ANXIETY
     Dates: end: 20050501
  2. PAROXETINE HYDROCHLORIDE [Suspect]
     Indication: ANXIETY
     Dates: start: 20050501
  3. PAROXETINE HYDROCHLORIDE [Suspect]
  4. PRENATAL VITAMINS [Concomitant]

REACTIONS (2)
  - ATRIAL SEPTAL DEFECT [None]
  - DRUG EXPOSURE DURING PREGNANCY [None]
